APPROVED DRUG PRODUCT: HEPARIN SODIUM PRESERVATIVE FREE
Active Ingredient: HEPARIN SODIUM
Strength: 10,000 UNITS/ML
Dosage Form/Route: INJECTABLE;INJECTION
Application: A089522 | Product #001 | TE Code: AP
Applicant: HOSPIRA INC
Approved: May 4, 1987 | RLD: No | RS: No | Type: RX